FAERS Safety Report 25716220 (Version 1)
Quarter: 2025Q3

REPORT INFORMATION
  Report Type: Spontaneous
  Country: CN (occurrence: CN)
  Receive Date: 20250822
  Receipt Date: 20250822
  Transmission Date: 20251020
  Serious: Yes (Other)
  Sender: JOHNSON AND JOHNSON
  Company Number: CN-JNJFOC-20250815822

PATIENT
  Age: 68 Year
  Sex: Male
  Weight: 59 kg

DRUGS (3)
  1. DARZALEX FASPRO [Suspect]
     Active Substance: DARATUMUMAB\HYALURONIDASE-FIHJ
     Indication: Plasma cell myeloma
     Route: 058
     Dates: start: 20250806, end: 20250806
  2. DENOSUMAB [Concomitant]
     Active Substance: DENOSUMAB
     Indication: Plasma cell myeloma
     Route: 058
     Dates: start: 20250806, end: 20250806
  3. AZACITIDINE [Concomitant]
     Active Substance: AZACITIDINE
     Indication: Product used for unknown indication

REACTIONS (4)
  - Night sweats [Recovering/Resolving]
  - Dyspnoea [Recovering/Resolving]
  - Blood pressure increased [Recovering/Resolving]
  - Administration related reaction [Recovering/Resolving]

NARRATIVE: CASE EVENT DATE: 20250806
